FAERS Safety Report 5964449-8 (Version None)
Quarter: 2008Q4

REPORT INFORMATION
  Report Type: 
  Country: None (occurrence: None)
  Receive Date: 20081124
  Receipt Date: 20081124
  Transmission Date: 20090506
  Serious: Yes (Other)
  Sender: FDA-Public Use
  Company Number: None

PATIENT
  Sex: Female

DRUGS (14)
  1. NOXAFIL [Suspect]
     Indication: FUNGAL INFECTION
     Dosage: 200MG/5ML 3X DAILY ORAL
     Route: 048
     Dates: start: 20081107, end: 20081114
  2. FERROX [Concomitant]
  3. PREZISTA [Concomitant]
  4. COMBIVIR [Concomitant]
  5. VIREAD [Concomitant]
  6. LOPERAMIDE HCL [Concomitant]
  7. ISENTRESS [Concomitant]
  8. NORVIR [Concomitant]
  9. PROCRIT [Concomitant]
  10. ACYCLOVIR [Concomitant]
  11. BACTRIM DS [Concomitant]
  12. ACIPHEX [Concomitant]
  13. CLOTRIMAZOLE/BETAMETHASONE CREAM [Concomitant]
  14. NEUPOGEN [Concomitant]

REACTIONS (3)
  - DIZZINESS [None]
  - HYPOTENSION [None]
  - LOSS OF CONSCIOUSNESS [None]
